FAERS Safety Report 4280771-8 (Version None)
Quarter: 2004Q1

REPORT INFORMATION
  Report Type: 
  Country: None (occurrence: None)
  Receive Date: 20040128
  Receipt Date: 20040128
  Transmission Date: 20041129
  Serious: No
  Sender: FDA-Public Use
  Company Number: None

PATIENT
  Sex: Male
  Weight: 90.7194 kg

DRUGS (15)
  1. FORTEO [Suspect]
     Indication: VENTRICULAR TACHYCARDIA
     Dosage: 20 MCG DAY SUBCUTANEOUS
     Route: 058
     Dates: start: 20031017, end: 20031124
  2. PREDNISONE [Concomitant]
  3. LEFLUNOMIDE [Concomitant]
  4. CELECOXIB [Concomitant]
  5. LISINOPRIL [Concomitant]
  6. L-THYROXINE [Concomitant]
  7. FOLIC ACID [Concomitant]
  8. ASPIRIN [Concomitant]
  9. M.V.I. [Concomitant]
  10. CA CARBONATE [Concomitant]
  11. WARFARIN SODIUM [Concomitant]
  12. METOPROLOL [Concomitant]
  13. OMEPRAZOLE [Concomitant]
  14. METHOTREXATE [Concomitant]
  15. VITAMIN D [Concomitant]

REACTIONS (3)
  - ARRHYTHMIA [None]
  - TRANSIENT ISCHAEMIC ATTACK [None]
  - VENTRICULAR TACHYCARDIA [None]
